FAERS Safety Report 5277687-7 (Version None)
Quarter: 2007Q1

REPORT INFORMATION
  Report Type: 
  Country: None (occurrence: None)
  Receive Date: 20070327
  Receipt Date: 20070315
  Transmission Date: 20070707
  Serious: Yes (Death)
  Sender: FDA-Public Use
  Company Number: US-PFIZER INC-2004106809

PATIENT
  Sex: Male

DRUGS (14)
  1. NEURONTIN [Suspect]
     Indication: BACK PAIN
     Route: 048
     Dates: start: 20020705, end: 20021112
  2. NEURONTIN [Suspect]
     Indication: MUSCLE SPASMS
  3. MORPHINE [Suspect]
     Indication: PAIN
     Dosage: TEXT:UNKNOWN
     Route: 065
  4. DURAGESIC-100 [Suspect]
     Indication: PAIN
     Dosage: DAILY DOSE:175MG
     Route: 062
     Dates: start: 20020814, end: 20021112
  5. HEROIN [Suspect]
     Indication: ILL-DEFINED DISORDER
     Dosage: FREQ:UNKNOWN
     Route: 065
  6. CITALOPRAM HYDROBROMIDE [Suspect]
     Indication: ILL-DEFINED DISORDER
     Dosage: FREQ:UNKNOWN
     Route: 065
  7. PROPOXYPHENE HYDROCHLORIDE [Suspect]
     Indication: ILL-DEFINED DISORDER
     Dosage: FREQ:UNKNOWN
     Route: 065
  8. ALPRAZOLAM [Concomitant]
  9. CLONAZEPAM [Concomitant]
  10. DIAZEPAM [Concomitant]
  11. EFFEXOR XR [Concomitant]
     Dosage: DAILY DOSE:225MG-FREQ:AT BEDTIME
  12. OXYCODONE HCL [Concomitant]
  13. CARDIZEM [Concomitant]
     Dosage: DAILY DOSE:60MG-FREQ:AT BEDTME
  14. MSIR [Concomitant]

REACTIONS (2)
  - COMPLETED SUICIDE [None]
  - INTENTIONAL OVERDOSE [None]
